FAERS Safety Report 8055592-0 (Version None)
Quarter: 2012Q1

REPORT INFORMATION
  Report Type: 
  Country: None (occurrence: None)
  Receive Date: 20120119
  Receipt Date: 20120118
  Transmission Date: 20120608
  Serious: Yes (Hospitalization)
  Sender: FDA-Public Use
  Company Number: ES-SHIRE-SPV1-2011-01544

PATIENT
  Age: 55 Year
  Sex: Female

DRUGS (4)
  1. ASPIRIN [Interacting]
     Indication: ESSENTIAL THROMBOCYTHAEMIA
     Dosage: 300 MG, 1X/DAY:QD
     Route: 048
     Dates: start: 20030101
  2. ASTUDAL [Concomitant]
     Indication: HYPERTENSION
     Dosage: 5 MG, 1X/DAY:QD
     Route: 048
  3. MICARDIS HCT [Concomitant]
     Indication: HYPERTENSION
     Dosage: 1 DF, 1X/DAY:QD
     Route: 048
  4. ANAGRELIDE HYDROCHLORIDE [Suspect]
     Indication: ESSENTIAL THROMBOCYTHAEMIA
     Dosage: 0.5 MG, UNKNOWN
     Route: 048
     Dates: start: 20070101

REACTIONS (8)
  - DRUG INTERACTION [None]
  - HEMIPARESIS [None]
  - MELAENA [None]
  - GASTRIC ULCER HELICOBACTER [None]
  - OESOPHAGITIS [None]
  - TRANSIENT ISCHAEMIC ATTACK [None]
  - DYSARTHRIA [None]
  - HAEMATEMESIS [None]
